FAERS Safety Report 15358796 (Version 1)
Quarter: 2018Q3

REPORT INFORMATION
  Report Type: Spontaneous
  Country: PL (occurrence: PL)
  Receive Date: 20180906
  Receipt Date: 20180906
  Transmission Date: 20181010
  Serious: Yes (Other)
  Sender: FDA-Public Use
  Company Number: PL-B.I. PHARMACEUTICALS,INC./RIDGEFIELD-2018-BI-044549

PATIENT
  Age: 85 Year
  Sex: Male

DRUGS (1)
  1. OMNI OCAS [Suspect]
     Active Substance: TAMSULOSIN HYDROCHLORIDE
     Indication: BENIGN PROSTATIC HYPERPLASIA
     Dosage: FORMULATION: MODIFIED?RELEASE
     Route: 048

REACTIONS (3)
  - Hallucination [Recovered/Resolved]
  - Hypotension [Unknown]
  - Middle insomnia [Unknown]

NARRATIVE: CASE EVENT DATE: 201808
